FAERS Safety Report 11091007 (Version 1)
Quarter: 2015Q2

REPORT INFORMATION
  Report Type: Spontaneous
  Country: US (occurrence: US)
  Receive Date: 20150505
  Receipt Date: 20150505
  Transmission Date: 20150821
  Serious: Yes (Other)
  Sender: FDA-Public Use
  Company Number: US-009507513-1505USA001206

PATIENT
  Age: 10 Year
  Sex: Female

DRUGS (3)
  1. HEXADROL [Suspect]
     Active Substance: DEXAMETHASONE
     Indication: BRAIN STEM GLIOMA
     Dosage: UNK
  2. HEXADROL [Suspect]
     Active Substance: DEXAMETHASONE
     Indication: GLIOMA
  3. BEVACIZUMAB [Suspect]
     Active Substance: BEVACIZUMAB
     Dosage: 10 MG/KG EVERY 2 WEEKS FOR 12 DOSES

REACTIONS (1)
  - Osteonecrosis [Recovering/Resolving]
